FAERS Safety Report 21785323 (Version 1)
Quarter: 2022Q4

REPORT INFORMATION
  Report Type: Spontaneous
  Country: US (occurrence: None)
  Receive Date: 20221227
  Receipt Date: 20221227
  Transmission Date: 20230112
  Serious: Yes (Hospitalization, Other)
  Sender: FDA-Public Use
  Company Number: 2022A412712

PATIENT
  Age: 69 Year
  Sex: Male

DRUGS (9)
  1. FARXIGA [Suspect]
     Active Substance: DAPAGLIFLOZIN PROPANEDIOL
     Indication: Chronic kidney disease
     Dosage: AS REQUIRED
     Route: 048
     Dates: start: 202202, end: 202211
  2. FARXIGA [Suspect]
     Active Substance: DAPAGLIFLOZIN PROPANEDIOL
     Indication: Type 2 diabetes mellitus
     Dosage: AS REQUIRED
     Route: 048
     Dates: start: 202202, end: 202211
  3. FARXIGA [Suspect]
     Active Substance: DAPAGLIFLOZIN PROPANEDIOL
     Indication: Coronary artery disease
     Dosage: AS REQUIRED
     Route: 048
     Dates: start: 202202, end: 202211
  4. LYRICA [Concomitant]
     Active Substance: PREGABALIN
  5. INSULIN NOS [Concomitant]
     Active Substance: INSULIN NOS
  6. XARELTO [Concomitant]
     Active Substance: RIVAROXABAN
  7. NIASPAN [Concomitant]
     Active Substance: NIACIN
  8. AMLODIPINE [Concomitant]
     Active Substance: AMLODIPINE BESYLATE
  9. BENAZEPRIL [Concomitant]
     Active Substance: BENAZEPRIL HYDROCHLORIDE

REACTIONS (1)
  - Acute kidney injury [Not Recovered/Not Resolved]

NARRATIVE: CASE EVENT DATE: 20221101
